FAERS Safety Report 11911229 (Version 6)
Quarter: 2020Q4

REPORT INFORMATION
  Report Type: Spontaneous
  Country: US (occurrence: US)
  Receive Date: 20160112
  Receipt Date: 20201118
  Transmission Date: 20210113
  Serious: Yes (Life-Threatening, Hospitalization, Other)
  Sender: FDA-Public Use
  Company Number: US-PFIZER INC-2016006306

PATIENT
  Age: 73 Year
  Sex: Female
  Weight: 110 kg

DRUGS (2)
  1. LYRICA [Suspect]
     Active Substance: PREGABALIN
     Indication: DIABETIC NEUROPATHY
     Dosage: UNK
     Dates: start: 2011
  2. LYRICA [Suspect]
     Active Substance: PREGABALIN
     Dosage: 150 MG, 2X/DAY (ONE IN MORNING AND ONE IN THE NIGHT)
     Route: 048
     Dates: start: 2014, end: 20160105

REACTIONS (5)
  - Pruritus [Recovered/Resolved]
  - Ludwig angina [Recovered/Resolved]
  - Mental impairment [Unknown]
  - Blood triglycerides increased [Recovered/Resolved]
  - Skin haemorrhage [Recovered/Resolved]

NARRATIVE: CASE EVENT DATE: 201409
